FAERS Safety Report 11509066 (Version 1)
Quarter: 2015Q3

REPORT INFORMATION
  Report Type: Spontaneous
  Country: US (occurrence: US)
  Receive Date: 20150903
  Receipt Date: 20150903
  Transmission Date: 20151125
  Serious: No
  Sender: FDA-Public Use
  Company Number: US-ELI_LILLY_AND_COMPANY-US200906001790

PATIENT
  Sex: Female

DRUGS (2)
  1. METFORMIN [Concomitant]
     Active Substance: METFORMIN HYDROCHLORIDE
     Dosage: 1000 MG, 2/D
  2. HUMALOG [Suspect]
     Active Substance: INSULIN LISPRO
     Dates: start: 2008

REACTIONS (3)
  - Eye infection [Recovering/Resolving]
  - Visual impairment [Unknown]
  - Fluid retention [Recovering/Resolving]

NARRATIVE: CASE EVENT DATE: 2008
